FAERS Safety Report 7942250-3 (Version None)
Quarter: 2011Q4

REPORT INFORMATION
  Report Type: 
  Country: None (occurrence: None)
  Receive Date: 20111128
  Receipt Date: 20111005
  Transmission Date: 20120403
  Serious: No
  Sender: FDA-Public Use
  Company Number: US-ABBOTT-11P-163-0862100-00

PATIENT
  Sex: Male
  Weight: 99.88 kg

DRUGS (2)
  1. ANDROGEL [Suspect]
     Indication: AFFECTIVE DISORDER
  2. ANDROGEL [Suspect]
     Indication: BLOOD TESTOSTERONE DECREASED
     Dosage: 2 PUMPS DAILY
     Dates: start: 20110601

REACTIONS (2)
  - HEADACHE [None]
  - DIZZINESS [None]
